FAERS Safety Report 21453019 (Version 1)
Quarter: 2022Q4

REPORT INFORMATION
  Report Type: Spontaneous
  Country: KR (occurrence: None)
  Receive Date: 20221013
  Receipt Date: 20221013
  Transmission Date: 20230113
  Serious: Yes (Death, Other)
  Sender: FDA-Public Use
  Company Number: KR-ROCHE-3194596

PATIENT

DRUGS (1)
  1. TAMIFLU [Suspect]
     Active Substance: OSELTAMIVIR PHOSPHATE
     Indication: Product used for unknown indication
     Route: 065

REACTIONS (6)
  - Fall [Fatal]
  - Delirium [Unknown]
  - Vomiting [Unknown]
  - Nausea [Unknown]
  - Sleep disorder [Unknown]
  - Headache [Unknown]
